FAERS Safety Report 5201514-7 (Version None)
Quarter: 2006Q4

REPORT INFORMATION
  Report Type: 
  Country: None (occurrence: None)
  Receive Date: 20061004
  Receipt Date: 20060727
  Transmission Date: 20070319
  Serious: Yes (Death)
  Sender: FDA-Public Use
  Company Number: US200606002786

PATIENT
  Age: 68 Year
  Sex: Male
  Weight: 68.5 kg

DRUGS (9)
  1. ALIMTA [Suspect]
     Indication: NON-SMALL CELL LUNG CANCER
     Dates: start: 20060404, end: 20060405
  2. PROTONIX [Concomitant]
  3. HYDROCODONE BITARTRATE [Concomitant]
  4. PREDNISONE TAB [Concomitant]
  5. ZOFRAN [Concomitant]
  6. ADVAIR DISKUS 100/50 [Concomitant]
  7. OXYCONTIN [Concomitant]
  8. VITAMNI B12 (CYANOCOBALAMIN) [Concomitant]
  9. FOLIC ACID [Concomitant]

REACTIONS (1)
  - MALIGNANT NEOPLASM PROGRESSION [None]
